FAERS Safety Report 10770679 (Version 2)
Quarter: 2015Q1

REPORT INFORMATION
  Report Type: Spontaneous
  Country: US (occurrence: US)
  Receive Date: 20150206
  Receipt Date: 20150212
  Transmission Date: 20150721
  Serious: Yes (Other)
  Sender: FDA-Public Use
  Company Number: US-BAYER-2015-015674

PATIENT
  Sex: Male

DRUGS (2)
  1. BETASERON [Suspect]
     Active Substance: INTERFERON BETA-1B
     Dosage: UNK
     Dates: end: 2005
  2. TYSABRI [Suspect]
     Active Substance: NATALIZUMAB
     Dosage: UNK

REACTIONS (4)
  - Tremor [None]
  - Nuclear magnetic resonance imaging abnormal [None]
  - Multiple sclerosis relapse [None]
  - Infection susceptibility increased [None]
